FAERS Safety Report 26215505 (Version 1)
Quarter: 2025Q4

REPORT INFORMATION
  Report Type: Spontaneous
  Country: EG (occurrence: EG)
  Receive Date: 20251231
  Receipt Date: 20251231
  Transmission Date: 20260118
  Serious: Yes (Life-Threatening, Hospitalization, Other)
  Sender: HIKMA
  Company Number: EG-HIKMA PHARMACEUTICALS-EG-H14001-25-13925

PATIENT
  Age: 46 Year
  Sex: Female
  Weight: 75 kg

DRUGS (4)
  1. CARBOPLATIN [Suspect]
     Active Substance: CARBOPLATIN
     Indication: Breast cancer
     Dosage: 135 MILLIGRAM, WEEKLY (DAY ONE ONLY DOSE ONE)
     Dates: start: 20250930
  2. PACLITAXEL [Suspect]
     Active Substance: PACLITAXEL
     Indication: Breast cancer
     Dosage: 135 MILLIGRAM, WEEKLY (DOSE 1)
  3. PACLITAXEL [Suspect]
     Active Substance: PACLITAXEL
     Dosage: 135 MILLIGRAM, WEEKLY (WEEK TWO, DOSE TWO BY FIVE MINUTES) OF STRENGTH 100 MG / 16.67 ML
     Dates: start: 20251005
  4. PACLITAXEL [Suspect]
     Active Substance: PACLITAXEL
     Dosage: 135 MILLIGRAM, WEEKLY (WEEK TWO, DOSE TWO BY FIVE MINUTES) ( OF STRENGTH 30 MG / 5 ML ),
     Dates: start: 20251005

REACTIONS (4)
  - Depressed level of consciousness [Recovered/Resolved]
  - Hypertension [Recovered/Resolved]
  - Dyspnoea [Recovered/Resolved]
  - Malaise [Recovered/Resolved]

NARRATIVE: CASE EVENT DATE: 20251005
